FAERS Safety Report 9459754 (Version 4)
Quarter: 2013Q3

REPORT INFORMATION
  Report Type: Report from Study
  Country: JP (occurrence: JP)
  Receive Date: 20130815
  Receipt Date: 20130926
  Transmission Date: 20140515
  Serious: Yes (Hospitalization, Other)
  Sender: FDA-Public Use
  Company Number: JP-ASTELLAS-2013US008594

PATIENT
  Age: 70 Year
  Sex: Male

DRUGS (29)
  1. ERLOTINIB TABLET [Suspect]
     Indication: NON-SMALL CELL LUNG CANCER
     Dosage: 150 MG, UID/QD
     Route: 048
     Dates: start: 20130213
  2. ERLOTINIB TABLET [Suspect]
     Dosage: 150 MG, UID/QD
     Route: 048
     Dates: start: 20130306, end: 20130320
  3. ERLOTINIB TABLET [Suspect]
     Dosage: 100 MG, UID/QD
     Route: 048
     Dates: start: 20130402
  4. ERLOTINIB TABLET [Suspect]
     Dosage: 100 MG, UID/QD
     Route: 048
     Dates: start: 20130423, end: 20130502
  5. ERLOTINIB TABLET [Suspect]
     Dosage: 50 MG, UID/QD
     Route: 048
     Dates: start: 20130528, end: 20130601
  6. AVASTIN /01555201/ [Suspect]
     Indication: NON-SMALL CELL LUNG CANCER
     Dosage: 997 MG, 1 IN 1 D
     Route: 041
     Dates: start: 20121003, end: 20121003
  7. AVASTIN /01555201/ [Suspect]
     Dosage: 997 MG, 1 IN 1 D
     Route: 041
     Dates: start: 20121101, end: 20121101
  8. AVASTIN /01555201/ [Suspect]
     Dosage: 997 MG, 1 IN 1 D
     Route: 041
     Dates: start: 20121206, end: 20121206
  9. AVASTIN /01555201/ [Suspect]
     Dosage: 997 MG, 1 IN 1 D
     Route: 041
     Dates: start: 20130108, end: 20130108
  10. AVASTIN /01555201/ [Suspect]
     Dosage: 997 MG, 1 IN 1 D
     Route: 041
     Dates: start: 20130213, end: 20130213
  11. AVASTIN /01555201/ [Suspect]
     Dosage: 997 MG, 1 IN 1 D
     Route: 041
     Dates: start: 20130306, end: 20130306
  12. AVASTIN /01555201/ [Suspect]
     Dosage: 997 MG, 1 IN 1 D
     Route: 041
     Dates: start: 20130402, end: 20130402
  13. AVASTIN /01555201/ [Suspect]
     Dosage: 997 MG
     Route: 041
     Dates: start: 20130423, end: 20130423
  14. AVASTIN /01555201/ [Suspect]
     Dosage: 997 MG, 1 IN 3 WK
     Route: 041
     Dates: start: 20130528
  15. AVASTIN /01555201/ [Suspect]
     Dosage: 997 MG, 1 IN 1 D
     Route: 041
     Dates: start: 20130618, end: 20130618
  16. CARBOPLATIN [Suspect]
     Indication: LUNG ADENOCARCINOMA METASTATIC
     Dosage: UNK
     Route: 041
     Dates: start: 20121003, end: 20121003
  17. CARBOPLATIN [Suspect]
     Dosage: UNK
     Route: 041
     Dates: start: 20121101, end: 20121101
  18. CARBOPLATIN [Suspect]
     Dosage: UNK
     Route: 041
     Dates: start: 20121206, end: 20121206
  19. CARBOPLATIN [Suspect]
     Dosage: UNK
     Route: 041
     Dates: start: 20130108, end: 20130108
  20. ALIMTA [Suspect]
     Indication: LUNG ADENOCARCINOMA METASTATIC
     Dosage: UNK
     Route: 041
     Dates: start: 20121003, end: 20121003
  21. ALIMTA [Suspect]
     Dosage: UNK
     Route: 041
     Dates: start: 20121101, end: 20121101
  22. ALIMTA [Suspect]
     Dosage: UNK
     Route: 065
     Dates: start: 20121206, end: 20121206
  23. ALIMTA [Suspect]
     Dosage: UNK
     Route: 065
     Dates: start: 20130108, end: 20130108
  24. SPIRIVA [Concomitant]
     Indication: EMPHYSEMA
     Dosage: 5 UG, UID/QD
     Route: 055
     Dates: start: 201007
  25. MAGMITT [Concomitant]
     Indication: CONSTIPATION PROPHYLAXIS
     Dosage: 500 MG, BID
     Route: 048
     Dates: start: 20121008
  26. SELBEX [Concomitant]
     Indication: GASTRITIS
     Dosage: 50 MG, TID
     Route: 048
     Dates: start: 20121101
  27. ZANTAC [Concomitant]
     Indication: GASTRITIS
     Dosage: 150 MG, BID
     Route: 048
     Dates: start: 20121101
  28. RHYTHMY [Concomitant]
     Indication: INSOMNIA
     Dosage: 2 MG, UID/QD
     Route: 048
     Dates: start: 20121101
  29. PURSENNID                          /00142207/ [Concomitant]
     Indication: CONSTIPATION
     Dosage: 12 MG, UID/QD
     Route: 048
     Dates: start: 20121101

REACTIONS (9)
  - Neutrophil count decreased [Unknown]
  - Oedema peripheral [Recovering/Resolving]
  - Gait disturbance [Not Recovered/Not Resolved]
  - Pleural effusion [Unknown]
  - Blood albumin decreased [Unknown]
  - Dermatitis acneiform [Not Recovered/Not Resolved]
  - Skin erosion [Unknown]
  - Thrombosis [Not Recovered/Not Resolved]
  - Scrotal haematocoele [Recovered/Resolved]
